FAERS Safety Report 25682728 (Version 1)
Quarter: 2025Q3

REPORT INFORMATION
  Report Type: Spontaneous
  Country: EU (occurrence: EU)
  Receive Date: 20250814
  Receipt Date: 20250814
  Transmission Date: 20251020
  Serious: Yes (Other)
  Sender: PFIZER
  Company Number: None

PATIENT
  Age: 14 Year
  Sex: Male
  Weight: 75 kg

DRUGS (2)
  1. LINEZOLID [Suspect]
     Active Substance: LINEZOLID
     Indication: Osteomyelitis acute
     Dosage: 10 MG/KG, 3X/DAY (EVERY 8 HOURS)
     Route: 042
     Dates: start: 20250705, end: 20250708
  2. CLOXACILLIN [Suspect]
     Active Substance: CLOXACILLIN
     Indication: Osteomyelitis acute
     Dosage: 150 MG/KG, 1X/DAY (EVERY 24 HOURS)
     Route: 042
     Dates: start: 20250702, end: 20250711

REACTIONS (2)
  - Rash maculo-papular [Recovered/Resolved]
  - Off label use [Unknown]

NARRATIVE: CASE EVENT DATE: 20250711
